FAERS Safety Report 4337652-0 (Version None)
Quarter: 2004Q2

REPORT INFORMATION
  Report Type: 
  Country: None (occurrence: None)
  Receive Date: 20040402
  Receipt Date: 20031222
  Transmission Date: 20050107
  Serious: Yes (Hospitalization)
  Sender: FDA-Public Use
  Company Number: 233338

PATIENT
  Age: 24 Year
  Sex: Female
  Weight: 88.4 kg

DRUGS (2)
  1. NOVOLOG [Suspect]
     Indication: DIABETES MELLITUS INSULIN-DEPENDENT
     Dosage: 33.5 IU, QD, 1 U/15G CHO, SUBCUTANEOUS
     Route: 058
     Dates: start: 20010101
  2. MINIMED PARADIGM 511 [Concomitant]

REACTIONS (1)
  - DIABETIC KETOACIDOSIS [None]
